FAERS Safety Report 6766289-9 (Version None)
Quarter: 2010Q2

REPORT INFORMATION
  Report Type: 
  Country: None (occurrence: None)
  Receive Date: 20100609
  Receipt Date: 20100512
  Transmission Date: 20101027
  Serious: No
  Sender: FDA-Public Use
  Company Number: 2010011484

PATIENT
  Age: 8 Year
  Sex: Male
  Weight: 29.9374 kg

DRUGS (3)
  1. CHILDREN'S ZYRTEC ALLERGY [Suspect]
     Indication: HYPERSENSITIVITY
     Dosage: ORAL
     Route: 048
  2. RANITIDINE (RANITIDINE0 [Concomitant]
  3. AMOXICILLIN [Concomitant]

REACTIONS (3)
  - MALAISE [None]
  - PAIN [None]
  - PRODUCT QUALITY ISSUE [None]
